FAERS Safety Report 25182690 (Version 1)
Quarter: 2025Q2

REPORT INFORMATION
  Report Type: Spontaneous
  Country: US (occurrence: US)
  Receive Date: 20250410
  Receipt Date: 20250410
  Transmission Date: 20250716
  Serious: No
  Sender: ROCHE
  Company Number: US-ROCHE-10000254474

PATIENT
  Sex: Male

DRUGS (9)
  1. ACTEMRA ACTPEN [Suspect]
     Active Substance: TOCILIZUMAB
     Indication: Giant cell arteritis
     Dosage: INJECT 162 MG SUBCUTANEOUSLY EVERY WEEK
     Route: 058
  2. ATORVASTATIN [Concomitant]
     Active Substance: ATORVASTATIN
  3. FINASTERIDE [Concomitant]
     Active Substance: FINASTERIDE
  4. FLAX SEED [Concomitant]
     Active Substance: FLAX SEED
  5. KETOCONAZOLE [Concomitant]
     Active Substance: KETOCONAZOLE
  6. MINOCYCLINE [Concomitant]
     Active Substance: MINOCYCLINE HYDROCHLORIDE
  7. FO TAB [Concomitant]
     Dosage: DAILY
  8. PROBIOTIC TBE [Concomitant]
  9. TERAZOSIN HC [Concomitant]

REACTIONS (1)
  - Pain [Not Recovered/Not Resolved]
